FAERS Safety Report 13573965 (Version 2)
Quarter: 2017Q2

REPORT INFORMATION
  Report Type: Spontaneous
  Country: DE (occurrence: DE)
  Receive Date: 20170523
  Receipt Date: 20170614
  Transmission Date: 20170830
  Serious: Yes (Hospitalization, Other)
  Sender: FDA-Public Use
  Company Number: DE-PFIZER INC-2017220826

PATIENT
  Age: 74 Year
  Sex: Female

DRUGS (4)
  1. LYRICA [Suspect]
     Active Substance: PREGABALIN
     Indication: NEURALGIA
     Dosage: 75 MG, 1X/DAY
     Dates: end: 201702
  2. MORPHINE [Concomitant]
     Active Substance: MORPHINE
  3. LYRICA [Suspect]
     Active Substance: PREGABALIN
     Indication: POLYNEUROPATHY
     Dosage: 75 MG, 2X/DAY
  4. LYRICA [Suspect]
     Active Substance: PREGABALIN
     Indication: PAIN
     Dosage: 75 MG, 2X/DAY
     Dates: start: 201607

REACTIONS (12)
  - Chest injury [Unknown]
  - Fall [Unknown]
  - Vision blurred [Recovered/Resolved]
  - Drug ineffective [Unknown]
  - Somnolence [Unknown]
  - Fatigue [Unknown]
  - General physical health deterioration [Unknown]
  - Hand deformity [Not Recovered/Not Resolved]
  - Haematoma [Unknown]
  - Dizziness [Unknown]
  - Visual impairment [Unknown]
  - Condition aggravated [Unknown]

NARRATIVE: CASE EVENT DATE: 201407
